FAERS Safety Report 25738935 (Version 1)
Quarter: 2025Q3

REPORT INFORMATION
  Report Type: Spontaneous
  Country: US (occurrence: None)
  Receive Date: 20250828
  Receipt Date: 20250828
  Transmission Date: 20251021
  Serious: Yes (Other)
  Sender: FDA-CTU
  Company Number: None

PATIENT
  Sex: Male

DRUGS (1)
  1. BCG-MEDAC [Suspect]
     Active Substance: BACILLUS CALMETTE-GUERIN SUBSTRAIN RIVM LIVE ANTIGEN
     Indication: Bladder cancer

REACTIONS (3)
  - Bacillus Calmette-Guerin infection [None]
  - Abscess [None]
  - Aortic disorder [None]
